FAERS Safety Report 25490808 (Version 1)
Quarter: 2025Q2

REPORT INFORMATION
  Report Type: Spontaneous
  Country: US (occurrence: US)
  Receive Date: 20250628
  Receipt Date: 20250628
  Transmission Date: 20250717
  Serious: No
  Sender: AMGEN
  Company Number: US-AMGEN-USASP2025124618

PATIENT
  Age: 89 Year
  Sex: Female

DRUGS (1)
  1. REPATHA [Suspect]
     Active Substance: EVOLOCUMAB
     Indication: Product used for unknown indication
     Route: 065

REACTIONS (4)
  - Product storage error [Unknown]
  - Incorrect disposal of product [Unknown]
  - Intercepted product administration error [Unknown]
  - Memory impairment [Unknown]

NARRATIVE: CASE EVENT DATE: 20250620
